FAERS Safety Report 5903285-5 (Version None)
Quarter: 2008Q3

REPORT INFORMATION
  Report Type: 
  Country: None (occurrence: None)
  Receive Date: 20080930
  Receipt Date: 20080925
  Transmission Date: 20090109
  Serious: Yes (Hospitalization, Other)
  Sender: FDA-Public Use
  Company Number: A0746450A

PATIENT
  Age: 21 Month
  Sex: Male

DRUGS (2)
  1. ZYRTEC [Suspect]
     Indication: VIRAL INFECTION
     Dosage: 3ML SINGLE DOSE
     Route: 065
     Dates: start: 20080820, end: 20080820
  2. FLIXOTIDE [Suspect]
     Indication: DRUG USE FOR UNKNOWN INDICATION
     Route: 065
     Dates: start: 20080701

REACTIONS (4)
  - COUGH [None]
  - OCULOGYRIC CRISIS [None]
  - PYREXIA [None]
  - RHINORRHOEA [None]
